FAERS Safety Report 4735638-5 (Version None)
Quarter: 2005Q3

REPORT INFORMATION
  Report Type: 
  Country: None (occurrence: None)
  Receive Date: 20050805
  Receipt Date: 20050706
  Transmission Date: 20060218
  Serious: Yes (Hospitalization)
  Sender: FDA-Public Use
  Company Number: FR-GLAXOSMITHKLINE-B0387333A

PATIENT
  Age: 5 Year
  Sex: Female
  Weight: 16 kg

DRUGS (1)
  1. ALKERAN [Suspect]
     Indication: MEDULLOBLASTOMA
     Dosage: 5MGML CYCLIC
     Route: 042
     Dates: start: 20050424, end: 20050517

REACTIONS (6)
  - ABDOMINAL PAIN [None]
  - HEADACHE [None]
  - HEPATITIS [None]
  - PERITONEAL EFFUSION [None]
  - TRANSAMINASES INCREASED [None]
  - VENOOCCLUSIVE LIVER DISEASE [None]
